FAERS Safety Report 7754683-9 (Version None)
Quarter: 2011Q3

REPORT INFORMATION
  Report Type: 
  Country: None (occurrence: None)
  Receive Date: 20110915
  Receipt Date: 20110905
  Transmission Date: 20111222
  Serious: Yes (Other)
  Sender: FDA-Public Use
  Company Number: BE-GENENTECH-324191

PATIENT
  Age: 33 Year
  Sex: Female

DRUGS (2)
  1. BETA-2 AGONIST NOS [Concomitant]
     Indication: PRODUCT USED FOR UNKNOWN INDICATION
  2. OMALIZUMAB [Suspect]
     Indication: ASTHMA
     Dosage: 2 DF, Q2W

REACTIONS (3)
  - ASTHMA [None]
  - INJECTION SITE PAIN [None]
  - PRURITUS [None]
